FAERS Safety Report 18436147 (Version 8)
Quarter: 2024Q3

REPORT INFORMATION
  Report Type: Report from Study
  Country: US (occurrence: US)
  Receive Date: 20201028
  Receipt Date: 20240702
  Transmission Date: 20241016
  Serious: Yes (Other)
  Sender: AKCEA THERAPEUTICS
  Company Number: US-AKCEA THERAPEUTICS-2020IS001375

PATIENT

DRUGS (1)
  1. TEGSEDI [Suspect]
     Active Substance: INOTERSEN SODIUM
     Indication: Hereditary neuropathic amyloidosis
     Dosage: 284 MG, QW
     Route: 058
     Dates: start: 20190611, end: 20211026

REACTIONS (2)
  - Renal impairment [Unknown]
  - Glomerulonephritis [Unknown]
